FAERS Safety Report 5281718-8 (Version None)
Quarter: 2007Q1

REPORT INFORMATION
  Report Type: 
  Country: None (occurrence: None)
  Receive Date: 20070330
  Receipt Date: 20070323
  Transmission Date: 20070707
  Serious: Yes (Hospitalization, Other)
  Sender: FDA-Public Use
  Company Number: US-GLAXOSMITHKLINE-A0644363A

PATIENT
  Age: 74 Year
  Sex: Female

DRUGS (3)
  1. ADVAIR DISKUS 100/50 [Suspect]
     Indication: ASTHMA
     Dosage: 1PUFF PER DAY
     Route: 055
     Dates: start: 20060101, end: 20070218
  2. NEBULIZER [Concomitant]
  3. INDERAL [Concomitant]

REACTIONS (5)
  - ASTHENIA [None]
  - COUGH [None]
  - NASOPHARYNGITIS [None]
  - PNEUMONIA [None]
  - WHEEZING [None]
